FAERS Safety Report 24543272 (Version 2)
Quarter: 2025Q3

REPORT INFORMATION
  Report Type: Spontaneous
  Country: EU (occurrence: EU)
  Receive Date: 20241024
  Receipt Date: 20250802
  Transmission Date: 20251021
  Serious: Yes (Other)
  Sender: ALEXION PHARMACEUTICALS
  Company Number: None

PATIENT
  Age: 75 Year
  Sex: Female

DRUGS (3)
  1. QUETIAPINE FUMARATE [Suspect]
     Active Substance: QUETIAPINE FUMARATE
  2. KEPPRA [Suspect]
     Active Substance: LEVETIRACETAM
  3. HALOPERIDOL [Concomitant]
     Active Substance: HALOPERIDOL

REACTIONS (14)
  - Urinary retention [Unknown]
  - Loss of consciousness [Unknown]
  - Faecaloma [Unknown]
  - Partial seizures [Unknown]
  - Cognitive disorder [Unknown]
  - Pneumonia [Recovering/Resolving]
  - Hyponatraemia [Unknown]
  - Loss of personal independence in daily activities [Unknown]
  - Extrapyramidal disorder [Unknown]
  - Mental disorder [Unknown]
  - Constipation [Unknown]
  - Hypotension [Unknown]
  - Generalised anxiety disorder [Unknown]
  - Urinary tract infection [Unknown]

NARRATIVE: CASE EVENT DATE: 20240917
